FAERS Safety Report 4533428-X (Version None)
Quarter: 2004Q4

REPORT INFORMATION
  Report Type: 
  Country: None (occurrence: None)
  Receive Date: 20041221
  Receipt Date: 19990823
  Transmission Date: 20050328
  Serious: Yes (Hospitalization)
  Sender: FDA-Public Use
  Company Number: JP-SOLVAY-00302000402

PATIENT
  Age: 22486 Day
  Sex: Male
  Weight: 57 kg

DRUGS (5)
  1. LENDORMIN [Concomitant]
     Indication: INSOMNIA
     Dosage: DAILY DOSE: 1 DF. FREQUENCY:UNKNOWN
     Route: 048
     Dates: start: 19971007, end: 19981005
  2. CREON [Suspect]
     Indication: PANCREATITIS CHRONIC
     Dosage: DAILY DOSE: 3 G. FREQUENCY:UNKNOWN
     Route: 048
     Dates: start: 19971007, end: 19980819
  3. CREON [Suspect]
     Dosage: DAILY DOSE: 3 G. FREQUENCY:UNKNOWN
     Route: 048
     Dates: start: 19980903, end: 19981005
  4. PENFILL 20 R [Concomitant]
     Indication: DIABETES MELLITUS INSULIN-DEPENDENT
     Dosage: DAILY DOSE: 1200 INTERNATIONAL UNIT(S)
     Route: 058
     Dates: start: 19971007, end: 19981005
  5. PENFILL N [Concomitant]
     Indication: DIABETES MELLITUS INSULIN-DEPENDENT
     Dosage: DAILY DOSE: 600 INTERNATIONAL UNIT(S)
     Route: 058
     Dates: start: 19971007, end: 19981005

REACTIONS (1)
  - ENTERITIS INFECTIOUS [None]
